FAERS Safety Report 8223851-4 (Version None)
Quarter: 2012Q1

REPORT INFORMATION
  Report Type: 
  Country: None (occurrence: None)
  Receive Date: 20120312
  Receipt Date: 20120303
  Transmission Date: 20120608
  Serious: Yes (Other)
  Sender: FDA-Public Use
  Company Number: 2012SP012046

PATIENT
  Sex: Male

DRUGS (3)
  1. PEG-INTRON [Suspect]
     Indication: HEPATITIS C
     Dates: start: 20120129
  2. RIBAVIRIN [Suspect]
     Indication: HEPATITIS C
     Dates: start: 20120129
  3. TELAPREVIR [Suspect]
     Indication: HEPATITIS C
     Dates: start: 20120129

REACTIONS (3)
  - ASTHENIA [None]
  - ABDOMINAL PAIN UPPER [None]
  - HAEMATOCHEZIA [None]
